FAERS Safety Report 20327674 (Version 1)
Quarter: 2022Q1

REPORT INFORMATION
  Report Type: Spontaneous
  Country: US (occurrence: US)
  Receive Date: 20220112
  Receipt Date: 20220112
  Transmission Date: 20220423
  Serious: Yes (Other)
  Sender: FDA-Public Use
  Company Number: US-SANOFI-00922118

PATIENT
  Age: 75 Year
  Sex: Female

DRUGS (3)
  1. AVAPRO [Suspect]
     Active Substance: IRBESARTAN
     Indication: Blood pressure measurement
     Dosage: 150 MG, QD
  2. COVID-19 VACCINE [Concomitant]
  3. INFLUENZA VIRUS VACCINE [Concomitant]
     Active Substance: INFLUENZA VIRUS VACCINE

REACTIONS (2)
  - COVID-19 pneumonia [Unknown]
  - Drug ineffective [Unknown]

NARRATIVE: CASE EVENT DATE: 20200101
